FAERS Safety Report 7554225-7 (Version None)
Quarter: 2011Q2

REPORT INFORMATION
  Report Type: 
  Country: None (occurrence: None)
  Receive Date: 20110617
  Receipt Date: 20110606
  Transmission Date: 20111010
  Serious: Yes (Hospitalization, Other)
  Sender: FDA-Public Use
  Company Number: US-PFIZER INC-2011128627

PATIENT
  Age: 15 Year
  Sex: Male

DRUGS (4)
  1. PANCURONIUM [Suspect]
     Dosage: UNK
  2. ONDANSETRON [Suspect]
     Dosage: UNK
  3. ISOFLURANE [Suspect]
     Indication: GENERAL ANAESTHESIA
     Dosage: UNK
     Route: 055
  4. SEVOFLURANE [Suspect]
     Indication: GENERAL ANAESTHESIA
     Route: 055

REACTIONS (2)
  - TACHYCARDIA [None]
  - DRUG INTERACTION [None]
